FAERS Safety Report 10440289 (Version 1)
Quarter: 2014Q3

REPORT INFORMATION
  Report Type: Spontaneous
  Country: US (occurrence: US)
  Receive Date: 20140909
  Receipt Date: 20140909
  Transmission Date: 20150326
  Serious: Yes (Hospitalization)
  Sender: FDA-Public Use
  Company Number: PHHY2014US109500

PATIENT
  Age: 40 Year
  Sex: Male

DRUGS (2)
  1. VERAPAMIL [Suspect]
     Active Substance: VERAPAMIL HYDROCHLORIDE
     Dosage: 14.5 G, UNK
  2. VERAPAMIL [Suspect]
     Active Substance: VERAPAMIL HYDROCHLORIDE
     Dosage: 12 G, UNK

REACTIONS (11)
  - Heart rate decreased [Unknown]
  - Pulmonary embolism [Unknown]
  - Hypotension [Unknown]
  - Ischaemia [Unknown]
  - Bradycardia [Unknown]
  - Abdominal pain [Unknown]
  - Arterial thrombosis [Unknown]
  - Renal failure [Unknown]
  - Blood pressure decreased [Unknown]
  - Overdose [Unknown]
  - Ileus [Unknown]
